FAERS Safety Report 5848670-5 (Version None)
Quarter: 2008Q3

REPORT INFORMATION
  Report Type: 
  Country: None (occurrence: None)
  Receive Date: 20080814
  Receipt Date: 20080804
  Transmission Date: 20090109
  Serious: Yes (Hospitalization, Other)
  Sender: FDA-Public Use
  Company Number: 15342

PATIENT
  Age: 61 Year
  Sex: Male
  Weight: 90.7194 kg

DRUGS (10)
  1. MORPHINE SULFATE [Suspect]
     Indication: ARTHRALGIA
     Dosage: 90 MG PRN ORALLY
     Route: 048
     Dates: start: 20070101, end: 20080715
  2. MORPHINE SULFATE [Suspect]
     Indication: MUSCULOSKELETAL PAIN
     Dosage: 90 MG PRN ORALLY
     Route: 048
     Dates: start: 20070101, end: 20080715
  3. FENTANYL [Concomitant]
  4. IBUPROFEN [Concomitant]
  5. CLONAZEPAM [Concomitant]
  6. LEXAPRO [Concomitant]
  7. NORTRIPTYLINE HCL [Concomitant]
  8. PROTONIX [Concomitant]
  9. QUINAPRIL [Concomitant]
  10. ASPIRIN [Concomitant]

REACTIONS (2)
  - DYSPNOEA [None]
  - PHARMACEUTICAL PRODUCT COMPLAINT [None]
